FAERS Safety Report 8513853 (Version 3)
Quarter: 2013Q2

REPORT INFORMATION
  Report Type: Spontaneous
  Country: CN (occurrence: CN)
  Receive Date: 20120416
  Receipt Date: 20130530
  Transmission Date: 20140414
  Serious: Yes (Hospitalization)
  Sender: FDA-Public Use
  Company Number: CN-ASTRAZENECA-2012SE20273

PATIENT
  Age: 74 Year
  Sex: Female

DRUGS (4)
  1. PLENDIL [Suspect]
     Indication: HYPERTENSION
     Route: 048
     Dates: start: 2004
  2. PLENDIL [Suspect]
     Indication: HYPERTENSION
     Route: 048
     Dates: start: 2009
  3. AZITHROMYCIN [Suspect]
     Route: 042
  4. CEPHALOSPORIN [Suspect]
     Route: 042

REACTIONS (3)
  - Anal prolapse [Recovering/Resolving]
  - Leukopenia [Recovering/Resolving]
  - Nasopharyngitis [Recovering/Resolving]
